FAERS Safety Report 8326360-7 (Version None)
Quarter: 2012Q2

REPORT INFORMATION
  Report Type: 
  Country: None (occurrence: None)
  Receive Date: 20120501
  Receipt Date: 20120425
  Transmission Date: 20120825
  Serious: Yes (Hospitalization)
  Sender: FDA-Public Use
  Company Number: US-ACTELION-A-NJ2012-63849

PATIENT

DRUGS (3)
  1. EPOPROSTENOL SODIUM [Suspect]
     Indication: PULMONARY ARTERIAL HYPERTENSION
     Dosage: 36 NG/KG, PER MIN
     Route: 041
     Dates: start: 20111122
  2. COUMADIN [Concomitant]
  3. CALCIUM CHANNEL BLOCKERS [Concomitant]

REACTIONS (4)
  - SEPSIS [None]
  - ASCITES [None]
  - FALL [None]
  - PARACENTESIS [None]
